FAERS Safety Report 14895588 (Version 1)
Quarter: 2018Q2

REPORT INFORMATION
  Report Type: Spontaneous
  Country: US (occurrence: US)
  Receive Date: 20180426
  Receipt Date: 20180426
  Transmission Date: 20180711
  Serious: Yes (Life-Threatening, Hospitalization, Disabling, Other)
  Sender: FDA-Public Use
  Company Number: None

PATIENT
  Age: 16 Year
  Sex: Female
  Weight: 47.25 kg

DRUGS (2)
  1. LEXAPRO [Suspect]
     Active Substance: ESCITALOPRAM OXALATE
     Indication: ANXIETY
     Dates: start: 20140303, end: 20180421
  2. GENERIC LEXAPRO [Suspect]
     Active Substance: ESCITALOPRAM OXALATE

REACTIONS (10)
  - Educational problem [None]
  - Fall [None]
  - Suicidal ideation [None]
  - Malaise [None]
  - Hypotension [None]
  - Upper limb fracture [None]
  - Physical assault [None]
  - Headache [None]
  - Head injury [None]
  - Concussion [None]

NARRATIVE: CASE EVENT DATE: 20180421
